FAERS Safety Report 8979546 (Version 1)
Quarter: 2012Q4

REPORT INFORMATION
  Report Type: 
  Country: IT (occurrence: IT)
  Receive Date: 20121221
  Receipt Date: 20121221
  Transmission Date: 20130627
  Serious: Yes (Other)
  Sender: FDA-Public Use
  Company Number: IT-BAYER-2012-133889

PATIENT
  Age: 19 Year
  Sex: Female

DRUGS (1)
  1. ASPIRINA [Suspect]
     Indication: COMMON COLD SYNDROME
     Dosage: 500 mg, ONCE
     Route: 048
     Dates: start: 20121009, end: 20121009

REACTIONS (2)
  - Urticaria [Recovering/Resolving]
  - Angioedema [Recovering/Resolving]
